FAERS Safety Report 9286160 (Version 1)
Quarter: 2013Q2

REPORT INFORMATION
  Report Type: Report from Study
  Country: ZA (occurrence: ZA)
  Receive Date: 20130513
  Receipt Date: 20130513
  Transmission Date: 20140414
  Serious: Yes (Hospitalization)
  Sender: FDA-Public Use
  Company Number: ZA-B.I. PHARMACEUTICALS,INC./RIDGEFIELD-2013-BI-12837GD

PATIENT
  Age: 28 Year
  Sex: Male

DRUGS (5)
  1. VIRAMUNE [Suspect]
     Indication: HIV INFECTION
  2. STAVUDINE [Suspect]
     Indication: HIV INFECTION
  3. LAMIVUDINE [Suspect]
     Indication: HIV INFECTION
  4. RIFAMPICIN [Suspect]
     Indication: TUBERCULOSIS
  5. ISONIAZIDE [Suspect]
     Indication: TUBERCULOSIS

REACTIONS (2)
  - Disseminated cryptococcosis [Unknown]
  - Liver disorder [Unknown]
